FAERS Safety Report 10297451 (Version 1)
Quarter: 2014Q3

REPORT INFORMATION
  Report Type: Spontaneous
  Country: IT (occurrence: IT)
  Receive Date: 20140711
  Receipt Date: 20140711
  Transmission Date: 20150326
  Serious: Yes (Other)
  Sender: FDA-Public Use
  Company Number: IT-JNJFOC-20140702024

PATIENT
  Age: 76 Year
  Sex: Female

DRUGS (4)
  1. DEPAKENE [Suspect]
     Active Substance: VALPROIC ACID
     Indication: WRONG DRUG ADMINISTERED
     Route: 048
     Dates: start: 20140630, end: 20140630
  2. HALDOL [Suspect]
     Active Substance: HALOPERIDOL
     Indication: WRONG DRUG ADMINISTERED
     Route: 048
     Dates: start: 20140630, end: 20140630
  3. LARGACTIL [Suspect]
     Active Substance: CHLORPROMAZINE
     Indication: WRONG DRUG ADMINISTERED
     Route: 048
     Dates: start: 20140630, end: 20140630
  4. ENTUMIN [Suspect]
     Active Substance: CLOTHIAPINE
     Indication: WRONG DRUG ADMINISTERED
     Route: 048
     Dates: start: 20140630, end: 20140630

REACTIONS (4)
  - Wrong drug administered [Unknown]
  - Hyperglycaemia [Unknown]
  - Hypotension [Unknown]
  - Sluggishness [Unknown]

NARRATIVE: CASE EVENT DATE: 20140630
